FAERS Safety Report 9221606 (Version 1)
Quarter: 2013Q1

REPORT INFORMATION
  Report Type: Spontaneous
  Country: US (occurrence: None)
  Receive Date: 20120831
  Receipt Date: 20120831
  Transmission Date: 20140127
  Serious: No
  Sender: FDA-Public Use
  Company Number: 1000030613

PATIENT
  Age: 85 Year
  Sex: Female

DRUGS (10)
  1. DALIRESP [Suspect]
     Indication: CHRONIC OBSTRUCTIVE PULMONARY DISEASE
     Dosage: 500 MCG, 1 IN 1
     Dates: start: 20120326, end: 20120512
  2. LANTUS (INSULIN GLARGINE) [Concomitant]
  3. HUMULINE (HUMAN MIXTARD) [Concomitant]
  4. ALBUTEROL [Concomitant]
  5. SPIRONOLACTONE [Concomitant]
  6. CYMBALTA (DULOXETINE HYDROCHLORIDE) [Concomitant]
  7. LYRICA (PREGABALIN) [Concomitant]
  8. LIPITOR (ATORVASTATIN CALCIUM) [Concomitant]
  9. SPIRIVA (TIOTROPIUM BROMIDE) [Concomitant]
  10. SINGULAIR [Concomitant]

REACTIONS (5)
  - Insomnia [None]
  - Nausea [None]
  - Headache [None]
  - Weight decreased [None]
  - Dizziness [None]
